FAERS Safety Report 6050475-X (Version None)
Quarter: 2009Q1

REPORT INFORMATION
  Report Type: 
  Country: None (occurrence: None)
  Receive Date: 20090126
  Receipt Date: 20090115
  Transmission Date: 20090719
  Serious: Yes (Other)
  Sender: FDA-Public Use
  Company Number: PHEH2008US11457

PATIENT
  Sex: Female

DRUGS (3)
  1. RECLAST [Suspect]
     Dosage: UNK
     Dates: start: 20080201
  2. FOSAMAX [Suspect]
  3. BONIVA [Suspect]

REACTIONS (8)
  - ARTHRALGIA [None]
  - BONE PAIN [None]
  - FRACTURE [None]
  - GAIT DISTURBANCE [None]
  - MUSCULOSKELETAL CHEST PAIN [None]
  - MYALGIA [None]
  - PAIN IN EXTREMITY [None]
  - WALKING AID USER [None]
